FAERS Safety Report 14820533 (Version 1)
Quarter: 2018Q2

REPORT INFORMATION
  Report Type: Report from Study
  Country: DE (occurrence: DE)
  Receive Date: 20180427
  Receipt Date: 20180427
  Transmission Date: 20180711
  Serious: Yes (Other)
  Sender: FDA-Public Use
  Company Number: DE-BAYER-2018-047647

PATIENT
  Age: 27 Year
  Sex: Female

DRUGS (1)
  1. BETAFERON [Suspect]
     Active Substance: INTERFERON BETA-1B
     Indication: MULTIPLE SCLEROSIS
     Dosage: 250 ?G, QOD
     Route: 058
     Dates: start: 20180214

REACTIONS (7)
  - Cardiovascular disorder [Unknown]
  - Memory impairment [Unknown]
  - Pain in extremity [Unknown]
  - Injection site pain [Unknown]
  - Drug dependence [None]
  - Memory impairment [Unknown]
  - Dizziness [Unknown]

NARRATIVE: CASE EVENT DATE: 20180305
